FAERS Safety Report 20758891 (Version 1)
Quarter: 2022Q2

REPORT INFORMATION
  Report Type: Spontaneous
  Country: US (occurrence: US)
  Receive Date: 20220427
  Receipt Date: 20220427
  Transmission Date: 20220720
  Serious: No
  Sender: FDA-Public Use
  Company Number: US-BAUSCH-BL-2022-009724

PATIENT
  Age: 48 Year
  Sex: Female
  Weight: 55.388 kg

DRUGS (3)
  1. TRULANCE [Suspect]
     Active Substance: PLECANATIDE
     Indication: Constipation
     Dosage: 3 MG SINGLE
     Route: 048
     Dates: start: 20220418, end: 20220418
  2. RITUXAN [Concomitant]
     Active Substance: RITUXIMAB
     Indication: Product used for unknown indication
     Dosage: AS DIRECTED
     Route: 042
  3. OMEPRAZOLE [Concomitant]
     Active Substance: OMEPRAZOLE
     Indication: Product used for unknown indication
     Dosage: AS DIRECTED
     Route: 048

REACTIONS (6)
  - Nausea [Recovering/Resolving]
  - Diarrhoea [Recovering/Resolving]
  - Cold sweat [Recovering/Resolving]
  - Abdominal pain upper [Recovering/Resolving]
  - Pallor [Recovering/Resolving]
  - Influenza [Unknown]

NARRATIVE: CASE EVENT DATE: 20220401
